FAERS Safety Report 7548099-8 (Version None)
Quarter: 2011Q2

REPORT INFORMATION
  Report Type: 
  Country: None (occurrence: None)
  Receive Date: 20110615
  Receipt Date: 20110523
  Transmission Date: 20111010
  Serious: Yes (Other)
  Sender: FDA-Public Use
  Company Number: US-BAYER-201032565NA

PATIENT
  Age: 22 Year
  Sex: Female
  Weight: 61 kg

DRUGS (24)
  1. DROSPIRENONE AND ETHINYL ESTRADIOL [Suspect]
     Indication: PREMENSTRUAL SYNDROME
  2. ADVIL LIQUI-GELS [Concomitant]
     Indication: PAIN
     Dosage: UNK UNK, PRN
  3. YASMIN [Suspect]
     Indication: MENSTRUAL CYCLE MANAGEMENT
     Dosage: UNK UNK, QD
     Route: 048
     Dates: start: 20060101, end: 20080401
  4. DROSPIRENONE AND ETHINYL ESTRADIOL [Suspect]
     Indication: MENSTRUAL CYCLE MANAGEMENT
     Dosage: UNK UNK, UNK
     Route: 048
     Dates: start: 20080701, end: 20090801
  5. DROSPIRENONE AND ETHINYL ESTRADIOL [Suspect]
     Indication: OVARIAN CYST
  6. PANLOR SS [Concomitant]
     Dosage: UNK
     Route: 048
     Dates: start: 20070912
  7. ANTIBIOTICS [Concomitant]
     Dosage: UNK
     Dates: start: 20000101, end: 20100101
  8. SOLU-MEDROL [Concomitant]
     Dosage: 125 MG, UNK
     Route: 040
     Dates: start: 20070911
  9. YASMIN [Suspect]
     Indication: PREMENSTRUAL SYNDROME
  10. DEMEROL [Concomitant]
     Indication: PAIN
     Dosage: 12.5 MG, UNK
     Route: 040
     Dates: start: 20070911
  11. YASMIN [Suspect]
     Indication: ORAL CONTRACEPTION
  12. PROMETHAZINE [Concomitant]
     Dosage: 25 MG, UNK
     Route: 048
     Dates: start: 20070910
  13. METOCLOPRAM [Concomitant]
     Dosage: 5 MG, UNK
     Route: 048
     Dates: start: 20071127
  14. COLYTE [Concomitant]
     Dosage: UNK
     Route: 048
     Dates: start: 20071128
  15. MOTRIN [Concomitant]
     Indication: PAIN
     Dosage: UNK UNK, PRN
  16. PHENERGAN HCL [Concomitant]
     Indication: NAUSEA
     Dosage: 12.5 MG, UNK
     Route: 040
     Dates: start: 20070911
  17. YASMIN [Suspect]
     Indication: OVARIAN CYST
  18. SULFAMETHOXAZOLE AND TRIMETHOPRIM DOUBLE STRENGTH [Concomitant]
     Dosage: UNK MG, UNK
     Route: 048
     Dates: start: 20070912
  19. APAP W/ CODEINE [Concomitant]
     Dosage: UNK
     Route: 048
     Dates: start: 20071116
  20. TYLENOL W/ CODEINE NO. 3 [Concomitant]
  21. DROSPIRENONE AND ETHINYL ESTRADIOL [Suspect]
     Indication: ORAL CONTRACEPTION
  22. HYOSCYAMINE [Concomitant]
     Dosage: 0.375 MG, UNK
     Route: 048
     Dates: start: 20070910, end: 20071127
  23. BENADRYL [Concomitant]
     Dosage: 12.5 MG, UNK
     Route: 040
     Dates: start: 20070911
  24. ACIPHEX [Concomitant]
     Dosage: 20 MG, UNK
     Route: 048
     Dates: start: 20071126

REACTIONS (16)
  - CHOLECYSTECTOMY [None]
  - DIARRHOEA [None]
  - DYSPNOEA [None]
  - METRORRHAGIA [None]
  - DRUG EXPOSURE DURING PREGNANCY [None]
  - MENORRHAGIA [None]
  - ROAD TRAFFIC ACCIDENT [None]
  - OBSTRUCTION [None]
  - PREGNANCY ON ORAL CONTRACEPTIVE [None]
  - GALLBLADDER DISORDER [None]
  - MUSCULOSKELETAL CHEST PAIN [None]
  - ABDOMINAL PAIN UPPER [None]
  - ABASIA [None]
  - WEIGHT DECREASED [None]
  - CHOLECYSTITIS CHRONIC [None]
  - BILIARY DYSKINESIA [None]
